FAERS Safety Report 6998590-8 (Version None)
Quarter: 2010Q3

REPORT INFORMATION
  Report Type: 
  Country: None (occurrence: None)
  Receive Date: 20100920
  Receipt Date: 20100302
  Transmission Date: 20110219
  Serious: Yes (Hospitalization, Other)
  Sender: FDA-Public Use
  Company Number: US-ASTRAZENECA-2010SE31443

PATIENT
  Age: 9426 Day
  Sex: Male

DRUGS (4)
  1. SEROQUEL [Suspect]
     Route: 048
     Dates: start: 20061220, end: 20061222
  2. LITHIUM CARBONATE [Concomitant]
     Dates: start: 20061220
  3. KLONOPIN [Concomitant]
     Dates: start: 20061220
  4. DEPAKOTE [Concomitant]
     Dates: start: 20061220

REACTIONS (2)
  - DIABETES MELLITUS [None]
  - SUICIDAL IDEATION [None]
